FAERS Safety Report 8281782-8 (Version None)
Quarter: 2012Q2

REPORT INFORMATION
  Report Type: 
  Country: None (occurrence: None)
  Receive Date: 20120413
  Receipt Date: 20120410
  Transmission Date: 20120825
  Serious: Yes (Other)
  Sender: FDA-Public Use
  Company Number: GB-JNJFOC-20120312839

PATIENT
  Age: 63 Year
  Sex: Male

DRUGS (2)
  1. CETIRIZINE HYDROCHLORIDE [Suspect]
     Indication: URTICARIA PIGMENTOSA
     Dosage: TAKING FOR FEW YEARS
     Route: 065
  2. CETIRIZINE HYDROCHLORIDE [Suspect]
     Indication: PRURITUS
     Dosage: TAKING FOR FEW YEARS
     Route: 065

REACTIONS (1)
  - TUBULOINTERSTITIAL NEPHRITIS [None]
